FAERS Safety Report 9202807 (Version 1)
Quarter: 2013Q2

REPORT INFORMATION
  Report Type: Spontaneous
  Country: US (occurrence: US)
  Receive Date: 20130401
  Receipt Date: 20130401
  Transmission Date: 20140414
  Serious: Yes (Other)
  Sender: FDA-Public Use
  Company Number: CHPA2013US005433

PATIENT
  Age: 67 Year
  Sex: Female

DRUGS (2)
  1. BENEFIBER STICK PACKS [Suspect]
     Indication: FLATULENCE
     Dosage: 1 DF, BID
     Route: 048
     Dates: start: 2011
  2. BENEFIBER W/ WHEAT DEXTRIN [Suspect]
     Indication: FLATULENCE
     Dosage: 1 TSP, BID
     Route: 048
     Dates: start: 2011

REACTIONS (4)
  - Colitis [Not Recovered/Not Resolved]
  - Flatulence [Not Recovered/Not Resolved]
  - Condition aggravated [Not Recovered/Not Resolved]
  - Off label use [Unknown]
